FAERS Safety Report 6901961-9 (Version None)
Quarter: 2010Q3

REPORT INFORMATION
  Report Type: 
  Country: None (occurrence: None)
  Receive Date: 20100803
  Receipt Date: 20080401
  Transmission Date: 20110219
  Serious: No
  Sender: FDA-Public Use
  Company Number: US-PFIZER INC-2008029661

PATIENT
  Sex: Female
  Weight: 77.1 kg

DRUGS (7)
  1. LYRICA [Suspect]
     Indication: NERVE COMPRESSION
     Dates: start: 20080301
  2. CYMBALTA [Concomitant]
  3. REQUIP [Concomitant]
  4. NEXIUM [Concomitant]
  5. XALATAN [Concomitant]
  6. DARIFENACIN HYDROBROMIDE [Concomitant]
  7. LASIX [Concomitant]

REACTIONS (4)
  - DIZZINESS [None]
  - INCONTINENCE [None]
  - RED BLOOD CELL COUNT DECREASED [None]
  - WHITE BLOOD CELL COUNT DECREASED [None]
